FAERS Safety Report 9842572 (Version 2)
Quarter: 2014Q2

REPORT INFORMATION
  Report Type: Spontaneous
  Country: FR (occurrence: FR)
  Receive Date: 20140124
  Receipt Date: 20140425
  Transmission Date: 20141212
  Serious: Yes (Death)
  Sender: FDA-Public Use
  Company Number: FR-NAPPMUNDI-GBR-2014-0016896

PATIENT
  Sex: Female

DRUGS (2)
  1. OXYCONTIN LP 10 MG, COMPRIME PELLICULE A LIBERATION PROLONGEE [Suspect]
     Dosage: 10 MG, UNK
     Route: 065
  2. OXYCODONE HCL PR TABLET 5 MG [Suspect]
     Dosage: 40 MG, UNK
     Route: 065

REACTIONS (1)
  - Sudden death [Fatal]
